FAERS Safety Report 9515651 (Version 2)
Quarter: 2014Q2

REPORT INFORMATION
  Report Type: Spontaneous
  Country: US (occurrence: US)
  Receive Date: 20130911
  Receipt Date: 20140618
  Transmission Date: 20141212
  Serious: Yes (Hospitalization)
  Sender: FDA-Public Use
  Company Number: US-BAYER-2013-108277

PATIENT
  Age: 41 Year
  Sex: Female
  Weight: 81.63 kg

DRUGS (20)
  1. OCELLA [Suspect]
     Indication: CONTRACEPTION
     Dosage: UNK
     Dates: start: 200912, end: 20100802
  2. OCELLA [Suspect]
     Indication: PREMENSTRUAL DYSPHORIC DISORDER
  3. YASMIN [Suspect]
     Indication: CONTRACEPTION
     Dosage: UNK
     Dates: start: 200801, end: 200912
  4. YASMIN [Suspect]
     Indication: PREMENSTRUAL DYSPHORIC DISORDER
  5. HYDROMORPHONE [Concomitant]
     Indication: PAIN
     Dosage: 2 MG, UNK
     Dates: start: 20100715, end: 20100802
  6. IBUPROFEN [Concomitant]
     Indication: PAIN
     Dosage: 800 MG, UNK
     Dates: start: 20100710, end: 20100802
  7. PROMETHAZINE [Concomitant]
     Indication: MOTION SICKNESS
     Dosage: 2.5 MG, UNK
     Dates: start: 20100710, end: 20100802
  8. SERTRALINE [Concomitant]
     Indication: ANTIDEPRESSANT THERAPY
     Dosage: 100 MG, UNK
     Dates: start: 20100730, end: 20100802
  9. SYNTHROID [Concomitant]
     Indication: THYROID DISORDER
     Dosage: 100 MG, UNK
     Dates: start: 20100611, end: 20100802
  10. TRAZODONE [Concomitant]
     Indication: PAIN
     Dosage: 50 MG, UNK
     Dates: start: 20100731, end: 20100802
  11. BUPROPION [Concomitant]
     Indication: EX-TOBACCO USER
     Dosage: 150 MG, UNK
     Dates: start: 20100731, end: 20100802
  12. ASPIRIN [Concomitant]
     Dosage: 81 MG, UNK
     Dates: start: 20100611
  13. VITAMIN D3 [Concomitant]
     Dosage: 2000 IU, UNK
     Dates: start: 20100611
  14. VITAMIN B12 [Concomitant]
     Dosage: 1500 MG, UNK
     Dates: start: 20100611
  15. HYDROCODONE W/APAP [Concomitant]
     Dosage: 5-500MG
     Dates: start: 20100611
  16. MOVIPREP [Concomitant]
     Dosage: UNK
     Dates: start: 20100527
  17. ALPRAZOLAM [Concomitant]
     Dosage: 0.25 MG, UNK
     Dates: start: 20100527
  18. DIAZEPAM [Concomitant]
     Dosage: 10 MG, UNK
     Dates: start: 20100708
  19. OXYCODONE [Concomitant]
     Dosage: 5 MG, UNK
     Dates: start: 20100708
  20. MORPHINE SULFATE [Concomitant]
     Dosage: 15 MG, UNK
     Dates: start: 20100708

REACTIONS (9)
  - Deep vein thrombosis [None]
  - Injury [None]
  - Pain in extremity [None]
  - General physical health deterioration [None]
  - Anxiety [None]
  - Emotional distress [None]
  - Pain [None]
  - Fear [None]
  - Pain [None]
